FAERS Safety Report 8786238 (Version 3)
Quarter: 2012Q4

REPORT INFORMATION
  Report Type: Report from Study
  Country: US (occurrence: AR)
  Receive Date: 20120914
  Receipt Date: 20121102
  Transmission Date: 20130627
  Serious: Yes (Hospitalization)
  Sender: FDA-Public Use
  Company Number: US-PFIZER INC-2012220502

PATIENT
  Age: 70 Year
  Sex: Male
  Weight: 68 kg

DRUGS (10)
  1. IRINOTECAN HCL [Suspect]
     Indication: METASTATIC COLORECTAL CANCER
     Dosage: 180 mg/m2, day 1 every 14 days
     Route: 042
     Dates: start: 20120404, end: 20120614
  2. IRINOTECAN HCL [Suspect]
     Dosage: UNK
     Dates: end: 20120802
  3. FLUOROURACIL [Suspect]
     Indication: METASTATIC COLORECTAL CANCER
     Dosage: 400 mg/m2, day 1 every 14 days
     Route: 040
     Dates: start: 20120404, end: 20120802
  4. FLUOROURACIL [Suspect]
     Dosage: 2400 mg/m2, on day 1 and 2 every 14 days
     Route: 042
     Dates: start: 20120404, end: 20120802
  5. FOLINIC ACID [Suspect]
     Indication: COLORECTAL CANCER METASTATIC
     Dosage: 400 mg/m2, day 1 every 14 days
     Route: 042
     Dates: start: 20120404, end: 20120802
  6. BLINDED THERAPY [Suspect]
     Indication: METASTATIC COLORECTAL CANCER
     Dosage: UNK
     Dates: start: 20120404, end: 20120802
  7. METHADONE [Concomitant]
     Indication: PAIN
     Dosage: UNK
     Dates: start: 20120404
  8. QUESTRAN LIGHT [Concomitant]
     Indication: DIARRHEA
     Dosage: UNK
     Dates: start: 20120706
  9. PREGABALIN [Concomitant]
     Indication: ABDOMINAL PAIN
     Dosage: UNK
     Dates: start: 20120404
  10. TRIMEBUTINE [Concomitant]
     Indication: VISUAL DISTURBANCE
     Dosage: UNK
     Dates: start: 20120404

REACTIONS (1)
  - Sepsis [Recovered/Resolved]
